FAERS Safety Report 19856011 (Version 1)
Quarter: 2021Q3

REPORT INFORMATION
  Report Type: Spontaneous
  Country: US (occurrence: US)
  Receive Date: 20210917
  Receipt Date: 20210917
  Transmission Date: 20211014
  Serious: No
  Sender: FDA-Public Use
  Company Number: None

PATIENT
  Sex: Male

DRUGS (1)
  1. HUMIRA [Suspect]
     Active Substance: ADALIMUMAB
     Indication: CROHN^S DISEASE
     Dosage: ?          OTHER DOSE:1 PEN;OTHER FREQUENCY:EVERY 14 DAYS;?
     Route: 058
     Dates: start: 201509

REACTIONS (3)
  - Needle issue [None]
  - Accidental exposure to product [None]
  - Device malfunction [None]
